FAERS Safety Report 11204121 (Version 2)
Quarter: 2015Q3

REPORT INFORMATION
  Report Type: Report from Study
  Country: AU (occurrence: AU)
  Receive Date: 20150619
  Receipt Date: 20150710
  Transmission Date: 20151125
  Serious: Yes (Other)
  Sender: FDA-Public Use
  Company Number: PHHY2015AU072375

PATIENT
  Age: 32 Year
  Sex: Male

DRUGS (1)
  1. CLOZARIL [Suspect]
     Active Substance: CLOZAPINE
     Indication: SCHIZOPHRENIA
     Dosage: 400 MG, QD
     Route: 048
     Dates: start: 1998

REACTIONS (3)
  - Upper respiratory tract infection [Unknown]
  - Neutrophil count increased [Unknown]
  - Leukocytosis [Recovered/Resolved]

NARRATIVE: CASE EVENT DATE: 20040705
